FAERS Safety Report 9295756 (Version 1)
Quarter: 2013Q1

REPORT INFORMATION
  Report Type: Spontaneous
  Country: US (occurrence: None)
  Receive Date: 20130103
  Receipt Date: 20130103
  Transmission Date: 20140127
  Serious: Yes (Hospitalization)
  Sender: FDA-Public Use
  Company Number: DSA_58607_2012

PATIENT
  Sex: Female

DRUGS (1)
  1. XENAZINE [Suspect]
     Indication: DYSKINESIA
     Dosage: 25 MG IN THE MORNING, 12.5 MG AT NOON AND 12.5 MG IN THE EVENING ORAL
     Route: 048
     Dates: start: 201112, end: 201206

REACTIONS (2)
  - Depression [None]
  - Decreased appetite [None]
